FAERS Safety Report 7352132-6 (Version None)
Quarter: 2011Q1

REPORT INFORMATION
  Report Type: 
  Country: None (occurrence: None)
  Receive Date: 20110315
  Receipt Date: 20110301
  Transmission Date: 20110831
  Serious: Yes (Other)
  Sender: FDA-Public Use
  Company Number: US-BRACCO-005603

PATIENT
  Sex: Male
  Weight: 79.36 kg

DRUGS (30)
  1. OMNISCAN [Suspect]
     Indication: MAGNETIC RESONANCE CHOLANGIOPANCREATOGRAPHY
     Route: 042
     Dates: start: 20060112, end: 20060112
  2. NEPHROCAPS [Concomitant]
  3. MAGNEVIST [Suspect]
     Indication: NUCLEAR MAGNETIC RESONANCE IMAGING
     Route: 042
     Dates: start: 20060206, end: 20060206
  4. OMNISCAN [Suspect]
     Indication: RENAL FAILURE
     Route: 042
     Dates: start: 20060112, end: 20060112
  5. CYTOXAN [Concomitant]
  6. CLONIDINE [Concomitant]
  7. LEVOTHYROXINE [Concomitant]
  8. PREDNISONE TAB [Concomitant]
  9. PROGRAF [Concomitant]
  10. NORVASC [Concomitant]
  11. MAGNEVIST [Suspect]
     Indication: ABDOMINAL PAIN
     Route: 042
     Dates: start: 20060206, end: 20060206
  12. OPTIMARK [Suspect]
     Indication: VENOUS THROMBOSIS
     Route: 042
     Dates: start: 20060525, end: 20060525
  13. OMNISCAN [Suspect]
     Indication: PANCREATITIS
     Route: 042
     Dates: start: 20060112, end: 20060112
  14. PLAVIX [Concomitant]
  15. METOPROLOL SUCCINATE [Concomitant]
  16. MULTIHANCE [Suspect]
     Indication: NUCLEAR MAGNETIC RESONANCE IMAGING
     Route: 042
     Dates: start: 20071030, end: 20071030
  17. MULTIHANCE [Suspect]
     Indication: ANGIOGRAM
     Route: 042
     Dates: start: 20071030, end: 20071030
  18. MAGNEVIST [Suspect]
     Indication: PANCREATITIS
     Route: 042
     Dates: start: 20060206, end: 20060206
  19. OPTIMARK [Suspect]
     Indication: NUCLEAR MAGNETIC RESONANCE IMAGING
     Route: 042
     Dates: start: 20060525, end: 20060525
  20. OPTIMARK [Suspect]
     Indication: TRANSPLANT EVALUATION
     Route: 042
     Dates: start: 20060525, end: 20060525
  21. EPOGEN [Concomitant]
  22. VISIPAQUE [Concomitant]
     Indication: STENT PLACEMENT
     Dates: start: 20070220
  23. VALSARTAN [Concomitant]
  24. OMNISCAN [Suspect]
     Indication: NUCLEAR MAGNETIC RESONANCE IMAGING
     Route: 042
     Dates: start: 20060112, end: 20060112
  25. FERROUS SULFATE TAB [Concomitant]
  26. WARFARIN SODIUM [Concomitant]
  27. VISIPAQUE [Concomitant]
     Indication: ANGIOGRAM
     Dates: start: 20070220
  28. SEVELAMER [Concomitant]
  29. ASPIRIN [Concomitant]
  30. VISIPAQUE [Concomitant]
     Indication: CATHETERISATION CARDIAC
     Dates: start: 20060731

REACTIONS (1)
  - NEPHROGENIC SYSTEMIC FIBROSIS [None]
